FAERS Safety Report 5292002-0 (Version None)
Quarter: 2007Q2

REPORT INFORMATION
  Report Type: 
  Country: None (occurrence: None)
  Receive Date: 20070406
  Receipt Date: 20070406
  Transmission Date: 20071010
  Serious: No
  Sender: FDA-Public Use
  Company Number: None

PATIENT
  Sex: Male
  Weight: 72.5755 kg

DRUGS (1)
  1. CIPROFLAXACIN [Suspect]
     Indication: PHARYNGOLARYNGEAL PAIN
     Dosage: 500MG   BID   PO
     Route: 048
     Dates: start: 20070401, end: 20070405

REACTIONS (1)
  - TENDON RUPTURE [None]
